FAERS Safety Report 18193708 (Version 1)
Quarter: 2020Q3

REPORT INFORMATION
  Report Type: Spontaneous
  Country: CN (occurrence: CN)
  Receive Date: 20200825
  Receipt Date: 20200825
  Transmission Date: 20201103
  Serious: Yes (Other)
  Sender: FDA-Public Use
  Company Number: CN-009507513-2008CHN012110

PATIENT
  Age: 74 Year
  Sex: Female
  Weight: 50 kg

DRUGS (7)
  1. ROSUVASTATIN CALCIUM. [Concomitant]
     Active Substance: ROSUVASTATIN CALCIUM
     Indication: ARTERIOSCLEROSIS
     Dosage: 10 MILLIGRAM, QD
     Route: 048
     Dates: start: 20200801, end: 20200813
  2. METFORMIN HYDROCHLORIDE. [Concomitant]
     Active Substance: METFORMIN HYDROCHLORIDE
     Indication: DIABETES MELLITUS
     Dosage: 0.5 GRAM, TID
     Route: 048
     Dates: start: 20200801, end: 20200811
  3. AMLODIPINE BESYLATE. [Concomitant]
     Active Substance: AMLODIPINE BESYLATE
     Indication: HYPERTENSION
     Dosage: 5 MILLIGRAM, QD
     Route: 048
     Dates: start: 20200801, end: 20200813
  4. WARFARIN SODIUM. [Concomitant]
     Active Substance: WARFARIN SODIUM
     Indication: ATRIAL FIBRILLATION
     Dosage: 3 MILLIGRAM, QD
     Route: 048
     Dates: start: 20200801, end: 20200806
  5. JANUVIA [Suspect]
     Active Substance: SITAGLIPTIN PHOSPHATE
     Indication: DIABETES MELLITUS
     Dosage: 0.1G, PO, QD, TABLETS
     Route: 048
     Dates: start: 20200805, end: 20200813
  6. BISOPROLOL FUMARATE. [Concomitant]
     Active Substance: BISOPROLOL FUMARATE
     Indication: HYPERTENSION
     Dosage: 5 MILLIGRAM, QD
     Route: 048
     Dates: start: 20200801, end: 20200813
  7. ACARBOSE. [Concomitant]
     Active Substance: ACARBOSE
     Indication: DIABETES MELLITUS
     Dosage: 0.1 GRAM, TID
     Route: 048
     Dates: start: 20200801, end: 20200812

REACTIONS (5)
  - Cholecystitis acute [Recovering/Resolving]
  - Cholelithiasis [Unknown]
  - Renal cyst [Unknown]
  - Biliary dilatation [Unknown]
  - Bile duct stone [Unknown]

NARRATIVE: CASE EVENT DATE: 20200805
